FAERS Safety Report 25619813 (Version 2)
Quarter: 2025Q4

REPORT INFORMATION
  Report Type: Spontaneous
  Country: US (occurrence: US)
  Receive Date: 20250730
  Receipt Date: 20251104
  Transmission Date: 20260118
  Serious: Yes (Hospitalization, Disabling, Other)
  Sender: COLLEGIUM PHARMACEUTICAL
  Company Number: US-COLLEGIUM PHARMACEUTICAL, INC.-20250702382

PATIENT

DRUGS (4)
  1. BELBUCA [Interacting]
     Active Substance: BUPRENORPHINE HYDROCHLORIDE
     Indication: Back pain
     Dosage: UNK, UNKNOWN
     Route: 002
  2. NORCO [Interacting]
     Active Substance: ACETAMINOPHEN\HYDROCODONE BITARTRATE
     Indication: Breakthrough pain
     Dosage: UNK UNK, UNKNOWN
     Route: 065
  3. NORCO [Interacting]
     Active Substance: ACETAMINOPHEN\HYDROCODONE BITARTRATE
     Dosage: 100 MILLIGRAM, UNKNOWN
     Route: 065
  4. HYDROCODONE [Suspect]
     Active Substance: HYDROCODONE
     Indication: Breakthrough pain
     Dosage: 7.5 MILLIGRAM, TID
     Route: 065

REACTIONS (8)
  - Internal haemorrhage [Unknown]
  - Blindness [Unknown]
  - Withdrawal syndrome [Unknown]
  - Feeling abnormal [Unknown]
  - Discomfort [Unknown]
  - Drug interaction [Unknown]
  - Somnolence [Unknown]
  - Nausea [Not Recovered/Not Resolved]

NARRATIVE: CASE EVENT DATE: 20240101
